FAERS Safety Report 5336434-0 (Version None)
Quarter: 2007Q2

REPORT INFORMATION
  Report Type: 
  Country: None (occurrence: None)
  Receive Date: 20070523
  Receipt Date: 20070514
  Transmission Date: 20071010
  Serious: Yes (Hospitalization)
  Sender: FDA-Public Use
  Company Number: 2007SP001351

PATIENT
  Age: 68 Year
  Sex: Female
  Weight: 74 kg

DRUGS (10)
  1. K-DUR 10 [Suspect]
     Indication: DRUG USE FOR UNKNOWN INDICATION
     Dates: start: 20051103, end: 20051108
  2. AVELOX [Suspect]
     Indication: DRUG USE FOR UNKNOWN INDICATION
     Dosage: 400 MG; QD; IV
     Route: 042
  3. MORPHINE [Suspect]
     Indication: DRUG USE FOR UNKNOWN INDICATION
     Dosage: 3 MG; PRN; IV
     Route: 042
  4. ZESTORETIC [Concomitant]
  5. BRADOSOL [Concomitant]
  6. TINZAPARIN [Concomitant]
  7. LORAZEPAM [Concomitant]
  8. ATROVENT [Concomitant]
  9. DOCUSATE [Concomitant]
  10. VENTOLIN [Concomitant]

REACTIONS (3)
  - RASH PAPULAR [None]
  - RASH PRURITIC [None]
  - SKIN WARM [None]
